FAERS Safety Report 18183397 (Version 1)
Quarter: 2020Q3

REPORT INFORMATION
  Report Type: Spontaneous
  Country: DE (occurrence: DE)
  Receive Date: 20200822
  Receipt Date: 20200822
  Transmission Date: 20201103
  Serious: Yes (Hospitalization, Other)
  Sender: FDA-Public Use
  Company Number: NVSC2020DE231978

PATIENT
  Sex: Male
  Weight: 96 kg

DRUGS (14)
  1. ACIC [Concomitant]
     Active Substance: ACYCLOVIR
     Indication: INFECTION PROPHYLAXIS
     Dosage: 1 DF, BID (MORNING AND EVENING)
     Route: 048
     Dates: end: 2016
  2. DECORTIN [Concomitant]
     Active Substance: PREDNISONE
     Indication: PRODUCT USED FOR UNKNOWN INDICATION
     Dosage: 100 MG, QD
     Route: 065
     Dates: start: 20160131
  3. CISPLATIN. [Suspect]
     Active Substance: CISPLATIN
     Indication: DISEASE RECURRENCE
     Route: 065
  4. ONDANSETRON [Concomitant]
     Active Substance: ONDANSETRON
     Indication: PRODUCT USED FOR UNKNOWN INDICATION
     Dosage: 8 MG, PRN (AS NEEDED)
     Route: 065
     Dates: start: 2016
  5. VALSARTAN ? 1 A PHARMA PLUS 160 MG/12,5 MG FILMTABLETTEN [Suspect]
     Active Substance: HYDROCHLOROTHIAZIDE\VALSARTAN
     Dosage: 1 DF, QD (MORNING) (HYDROCHLOROTHIAZIDE 160 MG, VALSARTAN 12.5 MG)
     Route: 065
     Dates: end: 201606
  6. CLEXANE [Concomitant]
     Active Substance: ENOXAPARIN SODIUM
     Indication: PRODUCT USED FOR UNKNOWN INDICATION
     Dosage: 0.4 ML, QD (EVENING)
     Route: 058
     Dates: start: 201601
  7. ACIC [Concomitant]
     Active Substance: ACYCLOVIR
     Dosage: 1 DF (MORNING AND EVENING)
     Route: 048
     Dates: start: 2016
  8. NEULASTA [Concomitant]
     Active Substance: PEGFILGRASTIM
     Indication: PRODUCT USED FOR UNKNOWN INDICATION
     Dosage: UNK
     Route: 065
     Dates: end: 201512
  9. VALSARTAN ? 1 A PHARMA PLUS 160 MG/12,5 MG FILMTABLETTEN [Suspect]
     Active Substance: HYDROCHLOROTHIAZIDE\VALSARTAN
     Indication: HYPERTENSION
     Dosage: 1 DF, QD (MORNING) (HYDROCHLOROTHIAZIDE 160 MG, VALSARTAN 12.5 MG)
     Route: 065
     Dates: start: 201401, end: 2014
  10. VALSARTAN HEXAL COMP 160 MG/12,5 MG FILMTABLETTEN [Suspect]
     Active Substance: HYDROCHLOROTHIAZIDE\VALSARTAN
     Indication: HYPERTENSION
     Dosage: (HYDROCHLOROTHIAZIDE 160, VALSARTAN 12.5) (UNITS NOT PROVIDED)
     Route: 065
     Dates: start: 2015, end: 2015
  11. COTRIMOXAZOLE [Suspect]
     Active Substance: SULFAMETHOXAZOLE\TRIMETHOPRIM
     Indication: PRODUCT USED FOR UNKNOWN INDICATION
     Dosage: UNK
     Route: 065
     Dates: end: 201512
  12. NEUPOGEN [Concomitant]
     Active Substance: FILGRASTIM
     Indication: PRODUCT USED FOR UNKNOWN INDICATION
     Dosage: 30 IU, QD
     Route: 058
     Dates: start: 201512, end: 2016
  13. PANTOZOL [Concomitant]
     Active Substance: PANTOPRAZOLE SODIUM
     Indication: PRODUCT USED FOR UNKNOWN INDICATION
     Dosage: 40 MG, QD (MORNING)
     Route: 065
  14. ACIC [Concomitant]
     Active Substance: ACYCLOVIR
     Dosage: 2 DF, QD (NOON)
     Route: 048
     Dates: start: 2016

REACTIONS (36)
  - Skin disorder [Unknown]
  - Abdominal mass [Unknown]
  - Acute kidney injury [Unknown]
  - General physical health deterioration [Recovered/Resolved]
  - Dyspnoea [Unknown]
  - Diarrhoea [Recovered/Resolved]
  - Tricuspid valve incompetence [Unknown]
  - Nocturia [Unknown]
  - Basal cell carcinoma [Unknown]
  - Polyneuropathy [Not Recovered/Not Resolved]
  - Ascites [Recovered/Resolved]
  - Nasopharyngitis [Unknown]
  - Cardiac failure [Not Recovered/Not Resolved]
  - Oedema peripheral [Unknown]
  - Mitral valve incompetence [Unknown]
  - Exercise tolerance decreased [Not Recovered/Not Resolved]
  - Body temperature increased [Recovered/Resolved]
  - Influenza like illness [Recovered/Resolved]
  - Disease recurrence [Unknown]
  - Immunodeficiency [Not Recovered/Not Resolved]
  - Oedema peripheral [Recovered/Resolved]
  - Bronchitis [Unknown]
  - Rash [Recovered/Resolved]
  - Night sweats [Recovered/Resolved]
  - C-reactive protein increased [Unknown]
  - Benign prostatic hyperplasia [Unknown]
  - Anaemia [Not Recovered/Not Resolved]
  - Pleural effusion [Unknown]
  - Productive cough [Unknown]
  - Cough [Unknown]
  - Non-Hodgkin^s lymphoma [Unknown]
  - Ventricular dysfunction [Unknown]
  - Hypogonadism [Not Recovered/Not Resolved]
  - Dyspnoea exertional [Recovered/Resolved]
  - Mucosal inflammation [Unknown]
  - Fatigue [Not Recovered/Not Resolved]

NARRATIVE: CASE EVENT DATE: 201411
